FAERS Safety Report 21760826 (Version 5)
Quarter: 2023Q1

REPORT INFORMATION
  Report Type: Spontaneous
  Country: US (occurrence: US)
  Receive Date: 20221221
  Receipt Date: 20230208
  Transmission Date: 20230417
  Serious: No
  Sender: FDA-Public Use
  Company Number: US-PFIZER INC-202201379706

PATIENT
  Age: 12 Year
  Sex: Male

DRUGS (1)
  1. GENOTROPIN [Suspect]
     Active Substance: SOMATROPIN
     Indication: Growth hormone deficiency
     Dosage: ALTERNATE 1.2 MG AND 1.4 MG, EACH NIGHT
     Dates: start: 20221214

REACTIONS (6)
  - Wrong technique in device usage process [Unknown]
  - Device issue [Unknown]
  - Device leakage [Unknown]
  - Drug dose omission by device [Unknown]
  - Abdominal discomfort [Recovering/Resolving]
  - Vomiting [Recovering/Resolving]

NARRATIVE: CASE EVENT DATE: 20221214
